FAERS Safety Report 5661503-5 (Version None)
Quarter: 2008Q1

REPORT INFORMATION
  Report Type: 
  Country: None (occurrence: None)
  Receive Date: 20080312
  Receipt Date: 20080303
  Transmission Date: 20080703
  Serious: Yes (Death)
  Sender: FDA-Public Use
  Company Number: DE-ROCHE-550914

PATIENT
  Age: 72 Year
  Sex: Male
  Weight: 85 kg

DRUGS (7)
  1. CAPECITABINE [Suspect]
     Indication: COLORECTAL CANCER
     Dosage: FREQUENCY REPORTED AS DAY 1 - 19:00 2000 MG/M2. DAY 2 TO DAY 14 - 08:00; 1500 MG/M2 AND 18:00; 2000+
     Route: 048
     Dates: start: 20080103, end: 20080227
  2. IRINOTECAN [Suspect]
     Indication: COLORECTAL CANCER
     Dosage: FREQUENCY REPORTED AS D1-D8. LAST DOSE PRIOR TO SAE REPORTED AS 21 FEBRUARY 2008.
     Route: 042
     Dates: start: 20080103, end: 20080227
  3. OMEPRAZOLE [Concomitant]
     Dates: end: 20080227
  4. FERRO SANOL DUODENAL [Concomitant]
     Dosage: FREQUENCY REPORTED AS 3X1.
     Dates: end: 20080227
  5. LYRICA [Concomitant]
     Dosage: FREQUENCY REPORTED AS 2X1.
     Dates: end: 20080227
  6. TRIMIPRAMINE MALEATE [Concomitant]
     Dates: end: 20080227
  7. NOVALGIN [Concomitant]
     Dates: end: 20080227

REACTIONS (1)
  - DEATH [None]
